FAERS Safety Report 8411834 (Version 4)
Quarter: 2013Q4

REPORT INFORMATION
  Report Type: Spontaneous
  Country: US (occurrence: None)
  Receive Date: 20111227
  Receipt Date: 20131226
  Transmission Date: 20140711
  Serious: Yes (Other)
  Sender: FDA-Public Use
  Company Number: PHEH2011US009710

PATIENT
  Age: 46 Year
  Sex: Female

DRUGS (20)
  1. GILENYA [Suspect]
     Indication: MULTIPLE SCLEROSIS
     Route: 048
     Dates: start: 20111028
  2. PROMETHAZINE [Suspect]
     Indication: NAUSEA
  3. PRILOSEC [Concomitant]
  4. VENLAFAXINE [Concomitant]
  5. HYDROXYZINE (HYDROXYZINE) [Concomitant]
  6. VALIUM (DIAZEPAM) [Concomitant]
  7. NAMENDA [Concomitant]
  8. CALCIUM WITH VITAMIN D (CALCIUM PHOSPHATE, CALCIUM SODIUM LACTATE, ERGOCALCIFEROL) [Concomitant]
  9. TYLENOL PM (DIPHENHYDRAMINE, PARACETAMOL) [Concomitant]
  10. VITAMIN D (ERGOCALCIFEROL) [Concomitant]
  11. BENADRYL (DEXTROMETHORPHAN HYDROBROMIDE, DIPHENHYDRAMINE HYDROCHLORIDE) [Concomitant]
  12. NORCO (HYDROCODONE BITARTRATE, PARACETAMOL) [Concomitant]
  13. EFFEXOR (VENLAFAXINE HYDROCHLORIDE) UNKNOWN [Concomitant]
  14. MULTIVITAMIN (VITAMINS NOS) [Concomitant]
  15. IRON (IRON) [Concomitant]
  16. BACLOFEN (BACLOFEN) [Concomitant]
  17. PROPRANOLOL (PROPRANOLOL) [Concomitant]
  18. MILNACIPRAN (MILNACIPRAN) (MILNACIPRAN) [Concomitant]
  19. NORVASC (AMLODIPINE BESILATE) [Concomitant]
  20. BUTALBITAL, ACETAMINOPHEN + CAFFEINE [Suspect]
     Indication: HEADACHE

REACTIONS (8)
  - Dysphemia [None]
  - Fatigue [None]
  - Nausea [None]
  - Headache [None]
  - Nasopharyngitis [None]
  - Inappropriate schedule of drug administration [None]
  - Blood pressure decreased [None]
  - Accidental overdose [None]
